FAERS Safety Report 5016116-5 (Version None)
Quarter: 2006Q2

REPORT INFORMATION
  Report Type: 
  Country: None (occurrence: None)
  Receive Date: 20060601
  Receipt Date: 20060522
  Transmission Date: 20061013
  Serious: Yes (Life-Threatening, Hospitalization)
  Sender: FDA-Public Use
  Company Number: DE-ABBOTT-06P-062-0333908-00

PATIENT
  Sex: Female

DRUGS (2)
  1. ERGENYL CHRONOSPHERE SACHET [Suspect]
     Indication: EPILEPSY
     Route: 048
     Dates: start: 20060505, end: 20060507
  2. ERGENYL CHRONOSPHERE SACHET [Suspect]
     Route: 048
     Dates: start: 20051201, end: 20060505

REACTIONS (10)
  - ACCIDENTAL OVERDOSE [None]
  - AMMONIA INCREASED [None]
  - DRUG TOXICITY [None]
  - ENCEPHALOPATHY [None]
  - LABORATORY TEST ABNORMAL [None]
  - MEDICATION ERROR [None]
  - METABOLIC ACIDOSIS [None]
  - PLATELET COUNT DECREASED [None]
  - SOMNOLENCE [None]
  - VOMITING [None]
